FAERS Safety Report 14067258 (Version 1)
Quarter: 2017Q4

REPORT INFORMATION
  Report Type: Report from Study
  Country: None (occurrence: RO)
  Receive Date: 20171010
  Receipt Date: 20171010
  Transmission Date: 20180321
  Serious: Yes (Hospitalization, Other)
  Sender: FDA-Public Use
  Company Number: RO-ABBVIE-17K-135-2120375-00

PATIENT
  Age: 48 Year
  Sex: Female

DRUGS (1)
  1. HUMIRA [Suspect]
     Active Substance: ADALIMUMAB
     Indication: COLITIS ULCERATIVE
     Route: 058
     Dates: start: 20170315, end: 201705

REACTIONS (8)
  - Hypoalbuminaemia [Recovered/Resolved]
  - Pyrexia [Unknown]
  - Frequent bowel movements [Recovered/Resolved]
  - Anaemia [Recovering/Resolving]
  - Escherichia urinary tract infection [Recovered/Resolved]
  - Haematochezia [Recovered/Resolved]
  - Abdominal pain [Unknown]
  - Prurigo [Recovering/Resolving]

NARRATIVE: CASE EVENT DATE: 20170526
